FAERS Safety Report 23222647 (Version 2)
Quarter: 2024Q2

REPORT INFORMATION
  Report Type: Spontaneous
  Country: CA (occurrence: CA)
  Receive Date: 20231123
  Receipt Date: 20240430
  Transmission Date: 20240716
  Serious: Yes (Disabling)
  Sender: FDA-Public Use
  Company Number: CA-SANDOZ-SDZ2023CA057794

PATIENT
  Age: 70 Year
  Sex: Female
  Weight: 112 kg

DRUGS (1)
  1. LANSOPRAZOLE [Suspect]
     Active Substance: LANSOPRAZOLE
     Indication: Gastrooesophageal reflux disease
     Dosage: 30 MG, QD (1 EVERY 1 DAYS)
     Route: 048

REACTIONS (2)
  - Chest pain [Recovered/Resolved]
  - Dyspnoea [Recovered/Resolved]
